FAERS Safety Report 10948010 (Version 1)
Quarter: 2015Q1

REPORT INFORMATION
  Report Type: Spontaneous
  Country: US (occurrence: US)
  Receive Date: 20150324
  Receipt Date: 20150324
  Transmission Date: 20150721
  Serious: Yes (Death, Other)
  Sender: FDA-Public Use
  Company Number: US-CIPLA LTD.-2015US02221

PATIENT

DRUGS (11)
  1. CITALOPRAM [Suspect]
     Active Substance: CITALOPRAM HYDROBROMIDE
  2. MORPHINE [Suspect]
     Active Substance: MORPHINE
  3. OXYCODONE [Suspect]
     Active Substance: OXYCODONE
  4. COCAINE [Suspect]
     Active Substance: COCAINE
  5. AMPHETAMINE [Suspect]
     Active Substance: AMPHETAMINE
  6. FLUOXETINE [Suspect]
     Active Substance: FLUOXETINE\FLUOXETINE HYDROCHLORIDE
  7. DEXTROMETHORPHAN [Suspect]
     Active Substance: DEXTROMETHORPHAN
  8. PROMETHAZINE [Suspect]
     Active Substance: PROMETHAZINE\PROMETHAZINE HYDROCHLORIDE
  9. LIDOCAINE. [Suspect]
     Active Substance: LIDOCAINE
  10. BENZODIAZEPINE [Suspect]
     Active Substance: BENZODIAZEPINE
  11. MARIJUANA [Suspect]
     Active Substance: CANNABIS SATIVA SUBSP. INDICA TOP

REACTIONS (3)
  - Respiratory arrest [Unknown]
  - Cardiac arrest [Unknown]
  - Drug abuse [Fatal]
